FAERS Safety Report 8792016 (Version 2)
Quarter: 2012Q4

REPORT INFORMATION
  Report Type: 
  Country: US (occurrence: US)
  Receive Date: 20120918
  Receipt Date: 20121126
  Transmission Date: 20130627
  Serious: No
  Sender: FDA-Public Use
  Company Number: US-VERTEX PHARMACEUTICAL INC.-AE-2012-011786

PATIENT
  Sex: Female
  Weight: 82.6 kg

DRUGS (4)
  1. VX-950 (TELAPREVIR) [Suspect]
     Indication: HEPATITIS C
     Dosage: 750 mg, tid
     Route: 048
     Dates: start: 201206, end: 20120824
  2. PEGASYS [Concomitant]
     Indication: HEPATITIS C
     Dosage: 90 ?g,qw
     Route: 058
     Dates: start: 201206, end: 20120824
  3. RIBASPHERE [Concomitant]
     Indication: HEPATITIS C
     Dosage: 600 mg, bid
     Route: 048
     Dates: start: 201206, end: 20120824
  4. LISINOPRIL [Concomitant]
     Dosage: 1 DF, UNK
     Route: 048

REACTIONS (2)
  - Anaemia [Unknown]
  - Rash generalised [Recovered/Resolved]
